FAERS Safety Report 25214553 (Version 1)
Quarter: 2025Q2

REPORT INFORMATION
  Report Type: Spontaneous
  Country: US (occurrence: US)
  Receive Date: 20250418
  Receipt Date: 20250418
  Transmission Date: 20250717
  Serious: Yes (Other)
  Sender: AMERICAN REGENT
  Company Number: US-AMERICAN REGENT INC-2025001542

PATIENT
  Sex: Female

DRUGS (3)
  1. VENOFER [Suspect]
     Active Substance: IRON SUCROSE
     Indication: Product used for unknown indication
     Route: 065
     Dates: start: 20250218, end: 20250218
  2. VENOFER [Suspect]
     Active Substance: IRON SUCROSE
     Route: 065
     Dates: start: 20250225, end: 20250225
  3. VENOFER [Suspect]
     Active Substance: IRON SUCROSE
     Route: 065
     Dates: start: 20250304, end: 20250304

REACTIONS (3)
  - Blood loss anaemia [Unknown]
  - Iron deficiency anaemia [Unknown]
  - Heavy menstrual bleeding [Unknown]

NARRATIVE: CASE EVENT DATE: 20250101
